FAERS Safety Report 23979250 (Version 4)
Quarter: 2025Q3

REPORT INFORMATION
  Report Type: Spontaneous
  Country: US (occurrence: US)
  Receive Date: 20240615
  Receipt Date: 20250811
  Transmission Date: 20251020
  Serious: No
  Sender: ABBVIE
  Company Number: US-ABBVIE-5797198

PATIENT
  Age: 71 Year
  Sex: Female
  Weight: 60.3 kg

DRUGS (4)
  1. ARMOUR THYROID [Suspect]
     Active Substance: THYROID, PORCINE
     Indication: Hypothyroidism
     Route: 048
     Dates: start: 2022
  2. ARMOUR THYROID [Suspect]
     Active Substance: THYROID, PORCINE
     Indication: Hypothyroidism
     Route: 048
     Dates: start: 20250805
  3. SYNTHROID [Suspect]
     Active Substance: LEVOTHYROXINE SODIUM
     Indication: Hypothyroidism
     Route: 048
     Dates: start: 2011
  4. SYNTHROID [Suspect]
     Active Substance: LEVOTHYROXINE SODIUM
     Indication: Hypothyroidism
     Route: 048

REACTIONS (6)
  - Brain fog [Unknown]
  - Drug ineffective [Not Recovered/Not Resolved]
  - Dizziness [Recovered/Resolved]
  - Speech disorder [Recovered/Resolved]
  - Fatigue [Recovered/Resolved]
  - Loss of personal independence in daily activities [Unknown]

NARRATIVE: CASE EVENT DATE: 20230101
